FAERS Safety Report 17593239 (Version 1)
Quarter: 2020Q1

REPORT INFORMATION
  Report Type: Spontaneous
  Country: CZ (occurrence: CZ)
  Receive Date: 20200327
  Receipt Date: 20200327
  Transmission Date: 20200409
  Serious: Yes (Other)
  Sender: FDA-Public Use
  Company Number: CZ-MYLANLABS-2020M1032055

PATIENT
  Sex: Female

DRUGS (2)
  1. AZITHROMYCIN ANHYDROUS. [Suspect]
     Active Substance: AZITHROMYCIN ANHYDROUS
     Indication: PRODUCT USED FOR UNKNOWN INDICATION
     Dosage: UNK
     Route: 048
     Dates: start: 201909
  2. DOXYCYCLINE. [Concomitant]
     Active Substance: DOXYCYCLINE
     Indication: PRODUCT USED FOR UNKNOWN INDICATION
     Dosage: UNK
     Route: 065

REACTIONS (9)
  - Hyperkeratosis [Unknown]
  - Hyperplasia [Unknown]
  - Erythema nodosum [Unknown]
  - Pyoderma gangrenosum [Unknown]
  - Mass [Unknown]
  - Pyoderma [Unknown]
  - Skin cancer [Unknown]
  - Drug ineffective [Unknown]
  - Limb discomfort [Unknown]

NARRATIVE: CASE EVENT DATE: 201910
